FAERS Safety Report 4947433-2 (Version None)
Quarter: 2006Q1

REPORT INFORMATION
  Report Type: 
  Country: None (occurrence: None)
  Receive Date: 20060317
  Receipt Date: 20050602
  Transmission Date: 20060701
  Serious: Yes (Hospitalization)
  Sender: FDA-Public Use
  Company Number: US-MERCK-0506USA00720

PATIENT
  Age: 68 Year
  Sex: Male
  Weight: 68 kg

DRUGS (4)
  1. VIOXX [Suspect]
     Indication: ARTHRITIS
     Route: 048
     Dates: start: 20000101, end: 20040930
  2. VIOXX [Suspect]
     Indication: PAIN
     Route: 048
     Dates: start: 20000101, end: 20040930
  3. DARVOCET [Concomitant]
     Route: 065
  4. CARDIZEM [Concomitant]
     Route: 065

REACTIONS (3)
  - ACCELERATED HYPERTENSION [None]
  - CEREBROVASCULAR ACCIDENT [None]
  - RENAL FAILURE CHRONIC [None]
